FAERS Safety Report 5632749-7 (Version None)
Quarter: 2008Q1

REPORT INFORMATION
  Report Type: 
  Country: None (occurrence: None)
  Receive Date: 20080221
  Receipt Date: 20080214
  Transmission Date: 20080703
  Serious: Yes (Other)
  Sender: FDA-Public Use
  Company Number: US-JNJFOC-20080203810

PATIENT
  Sex: Female
  Weight: 63.5 kg

DRUGS (4)
  1. FENTANYL TRANSDERMAL SYSTEM [Suspect]
     Indication: PAIN
     Route: 062
  2. NITROGLYCERIN [Concomitant]
     Indication: ARTERIAL DISORDER
     Route: 060
  3. QUINAPRIL HCL [Concomitant]
     Indication: HYPERTENSION
     Route: 048
  4. NIFEDIPINE [Concomitant]
     Indication: BLOOD PRESSURE
     Route: 048

REACTIONS (3)
  - ASTHENIA [None]
  - CHEST DISCOMFORT [None]
  - HYPERHIDROSIS [None]
